FAERS Safety Report 15990357 (Version 1)
Quarter: 2019Q1

REPORT INFORMATION
  Report Type: Spontaneous
  Country: US (occurrence: US)
  Receive Date: 20190221
  Receipt Date: 20190221
  Transmission Date: 20190418
  Serious: Yes (Other)
  Sender: FDA-Public Use
  Company Number: US-UCBSA-2019006869

PATIENT
  Age: 80 Year
  Sex: Male

DRUGS (1)
  1. LEVETIRACETAM. [Suspect]
     Active Substance: LEVETIRACETAM
     Indication: EPILEPSY
     Dosage: UNK

REACTIONS (7)
  - Anxiety [Unknown]
  - Migraine [Unknown]
  - Depression [Unknown]
  - Type 2 diabetes mellitus [Unknown]
  - Status epilepticus [Unknown]
  - Drug ineffective [Unknown]
  - Brain neoplasm [Unknown]
